FAERS Safety Report 23544533 (Version 1)
Quarter: 2024Q1

REPORT INFORMATION
  Report Type: Spontaneous
  Country: AU (occurrence: AU)
  Receive Date: 20240220
  Receipt Date: 20240220
  Transmission Date: 20240409
  Serious: Yes (Other)
  Sender: FDA-Public Use
  Company Number: AU-BAXTER-2024BAX012798

PATIENT
  Sex: Male

DRUGS (8)
  1. DOXORUBICIN [Suspect]
     Active Substance: DOXORUBICIN
     Indication: Hodgkin^s disease recurrent
     Dosage: UNK, AS A PART OF ABVD REGIMEN, C6
     Route: 065
  2. BLEOMYCIN [Suspect]
     Active Substance: BLEOMYCIN SULFATE
     Indication: Hodgkin^s disease recurrent
     Dosage: UNK, AS A PART OF ABVD REGIMEN, C6
     Route: 065
  3. VINBLASTINE [Suspect]
     Active Substance: VINBLASTINE
     Indication: Hodgkin^s disease recurrent
     Dosage: UNK, AS A PART OF ABVD REGIMEN, C6
     Route: 065
  4. DACARBAZINE [Suspect]
     Active Substance: DACARBAZINE
     Indication: Hodgkin^s disease recurrent
     Dosage: UNK, AS A PART OF ABVD REGIMEN, C6
     Route: 065
  5. GEMCITABINE [Suspect]
     Active Substance: GEMCITABINE
     Indication: Hodgkin^s disease recurrent
     Dosage: UNK
     Route: 065
  6. VINORELBINE [Suspect]
     Active Substance: VINORELBINE TARTRATE
     Indication: Hodgkin^s disease recurrent
     Dosage: UNK
     Route: 065
  7. PEMBROLIZUMAB [Suspect]
     Active Substance: PEMBROLIZUMAB
     Indication: Hodgkin^s disease recurrent
     Dosage: UNK
     Route: 065
  8. BRENTUXIMAB [Suspect]
     Active Substance: BRENTUXIMAB
     Indication: Hodgkin^s disease recurrent
     Dosage: UNK
     Route: 065

REACTIONS (3)
  - Hodgkin^s disease [Unknown]
  - Disease progression [Unknown]
  - Treatment failure [Unknown]
